FAERS Safety Report 7796540-8 (Version None)
Quarter: 2011Q4

REPORT INFORMATION
  Report Type: 
  Country: None (occurrence: None)
  Receive Date: 20111005
  Receipt Date: 20090722
  Transmission Date: 20120403
  Serious: Yes (Hospitalization, Other)
  Sender: FDA-Public Use
  Company Number: DE-RANBAXY-2009US-47262

PATIENT

DRUGS (5)
  1. ACETAMINOPHEN [Suspect]
     Indication: PRODUCT USED FOR UNKNOWN INDICATION
     Dosage: 500 MG, TID
     Route: 048
     Dates: start: 20090207, end: 20090210
  2. LORMETAZEPAM - RATIOPHARM [Suspect]
     Dosage: 1MG, 1 IN 1 D
     Route: 048
     Dates: start: 20090201, end: 20090207
  3. LORMETAZEPAM - RATIOPHARM [Suspect]
     Indication: PRODUCT USED FOR UNKNOWN INDICATION
     Dosage: 1MG, 1 IN 1 D
     Route: 048
     Dates: start: 20090126, end: 20090130
  4. PANTOZOL 20 [Suspect]
     Indication: PRODUCT USED FOR UNKNOWN INDICATION
     Dosage: 20 MG, 1 IN 1 D
     Route: 048
     Dates: start: 20090126, end: 20090212
  5. NOVAMINSULFON - RATIOPHARM [Suspect]
     Indication: PRODUCT USED FOR UNKNOWN INDICATION
     Dosage: 750 MG
     Route: 048
     Dates: start: 20090127, end: 20090217

REACTIONS (1)
  - HEPATITIS ACUTE [None]
